FAERS Safety Report 23056287 (Version 4)
Quarter: 2023Q4

REPORT INFORMATION
  Report Type: Report from Study
  Country: DK (occurrence: DK)
  Receive Date: 20231011
  Receipt Date: 20231108
  Transmission Date: 20240109
  Serious: Yes (Hospitalization)
  Sender: FDA-Public Use
  Company Number: DK-Eisai Medical Research-EC-2023-138660

PATIENT
  Age: 47 Year
  Sex: Male
  Weight: 85.8 kg

DRUGS (12)
  1. LENVATINIB [Suspect]
     Active Substance: LENVATINIB
     Indication: Clear cell renal cell carcinoma
     Route: 048
     Dates: start: 20230313, end: 20230413
  2. LENVATINIB [Suspect]
     Active Substance: LENVATINIB
     Route: 048
     Dates: start: 20230424, end: 20230502
  3. LENVATINIB [Suspect]
     Active Substance: LENVATINIB
     Route: 048
     Dates: start: 20230515, end: 20230906
  4. PEMBROLIZUMAB [Suspect]
     Active Substance: PEMBROLIZUMAB
     Indication: Clear cell renal cell carcinoma
     Route: 041
     Dates: start: 20230313, end: 20230313
  5. PEMBROLIZUMAB [Suspect]
     Active Substance: PEMBROLIZUMAB
     Route: 041
     Dates: start: 20230426, end: 20230426
  6. PEMBROLIZUMAB [Suspect]
     Active Substance: PEMBROLIZUMAB
     Route: 041
     Dates: start: 20230614, end: 20230614
  7. BENDROFLUMETHIAZIDE\POTASSIUM CHLORIDE [Concomitant]
     Active Substance: BENDROFLUMETHIAZIDE\POTASSIUM CHLORIDE
     Dates: start: 20230328, end: 20230703
  8. PANTOPRAZOLE [Concomitant]
     Active Substance: PANTOPRAZOLE
     Dates: start: 20220905, end: 20230718
  9. AMLODIPINE [Concomitant]
     Active Substance: AMLODIPINE BESYLATE
     Dates: start: 20220905
  10. RAMIPRIL [Concomitant]
     Active Substance: RAMIPRIL
     Dates: start: 20190827
  11. MELATONIN [Concomitant]
     Active Substance: MELATONIN
     Dates: start: 20230123
  12. SODIUM FLUORIDE [Concomitant]
     Active Substance: SODIUM FLUORIDE
     Dates: start: 20230330

REACTIONS (2)
  - Nervous system disorder [Recovered/Resolved]
  - Anxiety [Recovered/Resolved]

NARRATIVE: CASE EVENT DATE: 20230409
